FAERS Safety Report 14303142 (Version 18)
Quarter: 2019Q2

REPORT INFORMATION
  Report Type: Spontaneous
  Country: ES (occurrence: ES)
  Receive Date: 20171219
  Receipt Date: 20190611
  Transmission Date: 20190711
  Serious: Yes (Hospitalization, Other)
  Sender: FDA-Public Use
  Company Number: ES-MYLANLABS-2017M1079085

PATIENT
  Age: 82 Year
  Sex: Female
  Weight: 62 kg

DRUGS (2)
  1. MIRTAZAPINE. [Suspect]
     Active Substance: MIRTAZAPINE
     Indication: MAJOR DEPRESSION
  2. MIRTAZAPINE. [Suspect]
     Active Substance: MIRTAZAPINE
     Indication: DEPRESSION
     Dosage: 30 MG, Q6H (30 MILIGRAMO N?MERO DE TOMAS POR UNIDAD DE FRECUENCIA)
     Route: 048
     Dates: start: 20160610, end: 20160812

REACTIONS (6)
  - Dose calculation error [Recovered/Resolved]
  - Pancreatitis necrotising [Recovered/Resolved]
  - Pancreatic necrosis [Recovering/Resolving]
  - Prescribed overdose [Unknown]
  - Pancreatitis [Recovered/Resolved]
  - Off label use [Recovered/Resolved]

NARRATIVE: CASE EVENT DATE: 20160610
